FAERS Safety Report 5031407-X (Version None)
Quarter: 2006Q2

REPORT INFORMATION
  Report Type: 
  Country: None (occurrence: None)
  Receive Date: 20060504
  Receipt Date: 20051221
  Transmission Date: 20061013
  Serious: Yes (Other)
  Sender: FDA-Public Use
  Company Number: US-SHR-04-024641

PATIENT
  Sex: Female

DRUGS (1)
  1. REFLUDAN [Suspect]
     Indication: HEPARIN-INDUCED THROMBOCYTOPENIA
     Dosage: FULL DOSE, INTRAVENOUS
     Route: 042

REACTIONS (2)
  - ACCIDENTAL OVERDOSE [None]
  - HAEMORRHAGE [None]
